FAERS Safety Report 12190690 (Version 1)
Quarter: 2016Q1

REPORT INFORMATION
  Report Type: Spontaneous
  Country: CI (occurrence: CI)
  Receive Date: 20160318
  Receipt Date: 20160318
  Transmission Date: 20160526
  Serious: Yes (Other)
  Sender: FDA-Public Use
  Company Number: CI-GLAXOSMITHKLINE-CI2016GSK035459

PATIENT
  Age: 30 Year
  Sex: Female

DRUGS (1)
  1. VENTOLINE [Suspect]
     Active Substance: ALBUTEROL
     Indication: ASTHMA
     Dosage: UNK

REACTIONS (1)
  - Angina pectoris [Recovered/Resolved]
